FAERS Safety Report 6591646-3 (Version None)
Quarter: 2010Q1

REPORT INFORMATION
  Report Type: 
  Country: None (occurrence: None)
  Receive Date: 20100221
  Receipt Date: 20090812
  Transmission Date: 20100710
  Serious: No
  Sender: FDA-Public Use
  Company Number: US-ALLERGAN-0911186US

PATIENT
  Age: 48 Year
  Sex: Male

DRUGS (1)
  1. BOTOX COSMETIC [Suspect]
     Indication: SKIN WRINKLING
     Dosage: 82 UNITS, UNK
     Dates: start: 20090611, end: 20090611

REACTIONS (1)
  - DRUG INEFFECTIVE [None]
